FAERS Safety Report 5772660-4 (Version None)
Quarter: 2008Q2

REPORT INFORMATION
  Report Type: 
  Country: None (occurrence: None)
  Receive Date: 20080613
  Receipt Date: 20080522
  Transmission Date: 20081010
  Serious: No
  Sender: FDA-Public Use
  Company Number: US-BOEHRINGER INGELHEIM GMBH, GERMANY-2008-BP-07095BP

PATIENT
  Age: 28 Year
  Sex: Male
  Weight: 91 kg

DRUGS (4)
  1. MIRAPEX [Suspect]
     Indication: RESTLESS LEGS SYNDROME
     Route: 048
     Dates: start: 20080101, end: 20080101
  2. MIRAPEX [Suspect]
     Indication: PERIODIC LIMB MOVEMENT DISORDER
  3. CYMBALTA [Concomitant]
     Dates: start: 20080210
  4. LUNESTA [Concomitant]
     Dates: start: 20080107

REACTIONS (1)
  - CHILLS [None]
